FAERS Safety Report 9775651 (Version 1)
Quarter: 2013Q4

REPORT INFORMATION
  Report Type: Spontaneous
  Country: FR (occurrence: FR)
  Receive Date: 20131220
  Receipt Date: 20131220
  Transmission Date: 20140711
  Serious: Yes (Hospitalization)
  Sender: FDA-Public Use
  Company Number: FR-SA-2013SA129193

PATIENT
  Age: 89 Year
  Sex: Female

DRUGS (12)
  1. CORTANCYL [Concomitant]
  2. FORLAX [Concomitant]
     Dates: end: 201310
  3. PROPYLEX [Concomitant]
     Dates: end: 201310
  4. TARDYFERON [Concomitant]
     Dates: end: 201310
  5. UVEDOSE [Concomitant]
     Dates: end: 201310
  6. XARELTO [Concomitant]
     Dates: end: 201310
  7. COAPROVEL [Suspect]
     Indication: PRODUCT USED FOR UNKNOWN INDICATION
     Route: 048
  8. ATARAX [Suspect]
     Indication: PRODUCT USED FOR UNKNOWN INDICATION
     Route: 048
  9. BISOCE [Suspect]
     Indication: PRODUCT USED FOR UNKNOWN INDICATION
     Route: 048
  10. HUMALOG [Concomitant]
     Dates: end: 201310
  11. LANTUS [Concomitant]
     Dates: end: 201310
  12. ATROVENT [Concomitant]
     Route: 055
     Dates: end: 201310

REACTIONS (3)
  - Fall [Recovered/Resolved]
  - Craniocerebral injury [Recovered/Resolved]
  - Femur fracture [Recovering/Resolving]
